FAERS Safety Report 16213711 (Version 16)
Quarter: 2022Q4

REPORT INFORMATION
  Report Type: Spontaneous
  Country: US (occurrence: US)
  Receive Date: 20190418
  Receipt Date: 20221115
  Transmission Date: 20230113
  Serious: Yes (Life-Threatening, Hospitalization, Other)
  Sender: FDA-Public Use
  Company Number: US-PFIZER INC-2018486636

PATIENT
  Age: 69 Year
  Sex: Male
  Weight: 74.84 kg

DRUGS (7)
  1. VFEND [Suspect]
     Active Substance: VORICONAZOLE
     Indication: Graft infection
     Dosage: 300 MG, 2X/DAY (ONE 200MG TWICE A DAY ALONG WITH TWO 50MG TABLETS TWICE A DAY)
     Dates: start: 201710
  2. VFEND [Suspect]
     Active Substance: VORICONAZOLE
     Indication: Fungal infection
     Dosage: 100 MG, 2X/DAY (TWO 50 MG TABLET)
     Route: 048
     Dates: start: 201712
  3. VFEND [Suspect]
     Active Substance: VORICONAZOLE
     Indication: Fungal endocarditis
     Dosage: 200 MG, 2X/DAY
     Route: 048
     Dates: start: 201712
  4. VFEND [Suspect]
     Active Substance: VORICONAZOLE
     Dosage: 300 MG, 2X/DAY (50 + 200 MG TABLETS, MORNING AND NIGHT)
  5. VFEND [Suspect]
     Active Substance: VORICONAZOLE
     Dosage: 200 MG, 2X/DAY
  6. VFEND [Suspect]
     Active Substance: VORICONAZOLE
     Dosage: 200 MG, 2X/DAY (TAKE ONE TABLET BY MOUTH TWO TIMES)
     Route: 048
  7. VFEND [Suspect]
     Active Substance: VORICONAZOLE
     Dosage: 100 MG, 2X/DAY (50MG - TAKE TWO TABLETS BY MOUTH TWO TIMES DAILY)
     Route: 048

REACTIONS (13)
  - Cerebral haemorrhage [Unknown]
  - Abdominal pain upper [Unknown]
  - Leukaemia [Recovering/Resolving]
  - Cerebrovascular accident [Unknown]
  - Off label use [Unknown]
  - Product dose omission in error [Unknown]
  - Memory impairment [Unknown]
  - Dyslexia [Unknown]
  - Gait disturbance [Unknown]
  - Peripheral vascular disorder [Unknown]
  - Skin lesion [Unknown]
  - White blood cell count increased [Unknown]
  - Pain [Unknown]
